FAERS Safety Report 5532716-8 (Version None)
Quarter: 2007Q4

REPORT INFORMATION
  Report Type: 
  Country: None (occurrence: None)
  Receive Date: 20071119
  Receipt Date: 20070820
  Transmission Date: 20080405
  Serious: No
  Sender: FDA-Public Use
  Company Number: TPA2007A01767

PATIENT
  Age: 70 Year
  Sex: Female
  Weight: 77.1115 kg

DRUGS (3)
  1. ROZEREM [Suspect]
     Indication: INITIAL INSOMNIA
     Dosage: 8 MG, QHS, PER ORAL
     Route: 048
     Dates: start: 20070818, end: 20070819
  2. VYTORIN [Concomitant]
  3. DIOVAN [Concomitant]

REACTIONS (5)
  - ASTHENIA [None]
  - DIZZINESS [None]
  - HANGOVER [None]
  - HEADACHE [None]
  - INITIAL INSOMNIA [None]
